FAERS Safety Report 6141307-X (Version None)
Quarter: 2009Q1

REPORT INFORMATION
  Report Type: 
  Country: None (occurrence: None)
  Receive Date: 20090330
  Receipt Date: 20090330
  Transmission Date: 20090719
  Serious: Yes (Other)
  Sender: FDA-Public Use
  Company Number: None

PATIENT
  Sex: Female
  Weight: 68.4932 kg

DRUGS (6)
  1. NORTRIPTYLINE HCL [Suspect]
     Indication: FATIGUE
     Dosage: 25MGS @ BEDTIME ONCE DAILY BY MOUTH 2002-2008 AND NOW
     Dates: start: 20020101, end: 20080101
  2. NORTRIPTYLINE HCL [Suspect]
     Indication: PAIN
     Dosage: 25MGS @ BEDTIME ONCE DAILY BY MOUTH 2002-2008 AND NOW
     Dates: start: 20020101, end: 20080101
  3. NORTRIPTYLINE HCL [Suspect]
     Indication: FATIGUE
     Dosage: 25MGS @ BEDTIME ONCE DAILY BY MOUTH
     Dates: start: 20080101, end: 20080901
  4. NORTRIPTYLINE HCL [Suspect]
     Indication: PAIN
     Dosage: 25MGS @ BEDTIME ONCE DAILY BY MOUTH
     Dates: start: 20080101, end: 20080901
  5. NORTRIPTYLINE HCL [Suspect]
     Indication: FATIGUE
     Dosage: 25MGS @ BEDTIME ONCE DAILY BY MOUTH
     Dates: start: 20090101, end: 20090201
  6. NORTRIPTYLINE HCL [Suspect]
     Indication: PAIN
     Dosage: 25MGS @ BEDTIME ONCE DAILY BY MOUTH
     Dates: start: 20090101, end: 20090201

REACTIONS (4)
  - BACK PAIN [None]
  - CHEST DISCOMFORT [None]
  - MALAISE [None]
  - PRODUCT QUALITY ISSUE [None]
